FAERS Safety Report 8337070-4 (Version None)
Quarter: 2012Q2

REPORT INFORMATION
  Report Type: 
  Country: None (occurrence: None)
  Receive Date: 20120504
  Receipt Date: 20120502
  Transmission Date: 20120825
  Serious: Yes (Other)
  Sender: FDA-Public Use
  Company Number: CA-PFIZER INC-2012016812

PATIENT
  Sex: Male

DRUGS (5)
  1. INSPRA [Suspect]
     Indication: HYPERALDOSTERONISM
     Dosage: 25 MG, UNK
     Dates: start: 20110601
  2. VITAMIN TAB [Concomitant]
     Dosage: UNK
  3. ANDROGEL [Concomitant]
     Dosage: 4 PUFFS/DAY
  4. INSPRA [Suspect]
     Dosage: 12.5 MG, UNK
     Dates: end: 20111001
  5. GINKO BILOBA [Concomitant]
     Dosage: UNK

REACTIONS (3)
  - DRUG INTOLERANCE [None]
  - COGNITIVE DISORDER [None]
  - PROSTATIC SPECIFIC ANTIGEN INCREASED [None]
